FAERS Safety Report 16220066 (Version 1)
Quarter: 2019Q2

REPORT INFORMATION
  Report Type: Spontaneous
  Country: US (occurrence: US)
  Receive Date: 20190420
  Receipt Date: 20190420
  Transmission Date: 20190711
  Serious: No
  Sender: FDA-Public Use
  Company Number: US-009507513-1904USA003147

PATIENT
  Age: 30 Year
  Sex: Female

DRUGS (2)
  1. METFORMIN [Concomitant]
     Active Substance: METFORMIN HYDROCHLORIDE
     Indication: POLYCYSTIC OVARIES
  2. JANUVIA [Suspect]
     Active Substance: SITAGLIPTIN PHOSPHATE
     Indication: TYPE 2 DIABETES MELLITUS
     Dosage: 100 MG, ONE PILL/ONCE A DAY
     Route: 048
     Dates: start: 20190403, end: 20190404

REACTIONS (1)
  - Paraesthesia [Recovering/Resolving]

NARRATIVE: CASE EVENT DATE: 20190403
